FAERS Safety Report 14813125 (Version 1)
Quarter: 2018Q2

REPORT INFORMATION
  Report Type: Spontaneous
  Country: FR (occurrence: FR)
  Receive Date: 20180426
  Receipt Date: 20180426
  Transmission Date: 20180711
  Serious: Yes (Other)
  Sender: FDA-Public Use
  Company Number: FR-MERCK KGAA-2046556

PATIENT
  Age: 69 Year
  Sex: Female

DRUGS (1)
  1. NOVOTHYROX [Suspect]
     Active Substance: LEVOTHYROXINE SODIUM
     Indication: HYPOTHYROIDISM
     Dates: end: 201709

REACTIONS (23)
  - Abdominal pain upper [Recovering/Resolving]
  - Back pain [Recovering/Resolving]
  - Amnesia [Recovering/Resolving]
  - Blood thyroid stimulating hormone abnormal [Not Recovered/Not Resolved]
  - Alopecia [Recovering/Resolving]
  - Headache [Recovering/Resolving]
  - Visual impairment [Recovering/Resolving]
  - Impaired driving ability [Recovering/Resolving]
  - Onychoclasis [Recovering/Resolving]
  - Nausea [Recovering/Resolving]
  - Dry skin [Recovering/Resolving]
  - Loss of personal independence in daily activities [Recovering/Resolving]
  - Blood thyroid stimulating hormone decreased [None]
  - Fatigue [Recovering/Resolving]
  - Myalgia [Recovering/Resolving]
  - Arthralgia [Recovering/Resolving]
  - Dysgeusia [Recovering/Resolving]
  - Asthenia [Recovering/Resolving]
  - Hypertension [Not Recovered/Not Resolved]
  - Weight increased [Recovering/Resolving]
  - Dizziness [Recovering/Resolving]
  - Emotional distress [Recovering/Resolving]
  - Protein total decreased [None]

NARRATIVE: CASE EVENT DATE: 20170909
